FAERS Safety Report 22265032 (Version 2)
Quarter: 2023Q2

REPORT INFORMATION
  Report Type: Spontaneous
  Country: CA (occurrence: CA)
  Receive Date: 20230428
  Receipt Date: 20230531
  Transmission Date: 20230721
  Serious: Yes (Other)
  Sender: FDA-Public Use
  Company Number: CA-JNJFOC-20230445798

PATIENT
  Age: 53 Year
  Sex: Female

DRUGS (1)
  1. REMICADE [Suspect]
     Active Substance: INFLIXIMAB
     Indication: Rheumatoid arthritis
     Route: 041
     Dates: start: 2007, end: 2017

REACTIONS (6)
  - Joint arthroplasty [Unknown]
  - Knee arthroplasty [Unknown]
  - Ankle operation [Unknown]
  - Neck surgery [Unknown]
  - Deformity [Unknown]
  - Drug ineffective [Unknown]
